FAERS Safety Report 19370057 (Version 3)
Quarter: 2021Q4

REPORT INFORMATION
  Report Type: Report from Study
  Country: KR (occurrence: KR)
  Receive Date: 20210604
  Receipt Date: 20211116
  Transmission Date: 20220303
  Serious: Yes (Other)
  Sender: FDA-Public Use
  Company Number: KR-KYOWAKIRIN-2021AKK009133

PATIENT
  Age: 44 Year
  Sex: Female

DRUGS (89)
  1. FILGRASTIM [Suspect]
     Active Substance: FILGRASTIM
     Indication: Product used for unknown indication
     Dosage: 300 UNK
     Route: 065
     Dates: start: 20111109, end: 20111118
  2. FILGRASTIM [Suspect]
     Active Substance: FILGRASTIM
     Dosage: 0.7 UNK
     Route: 065
     Dates: start: 20120105, end: 20120105
  3. FILGRASTIM [Suspect]
     Active Substance: FILGRASTIM
     Dosage: 0.7 UNK
     Route: 065
     Dates: start: 20120110, end: 20120113
  4. FILGRASTIM [Suspect]
     Active Substance: FILGRASTIM
     Dosage: 0.7 UNK
     Route: 065
     Dates: start: 20120114, end: 20120116
  5. FILGRASTIM [Suspect]
     Active Substance: FILGRASTIM
     Dosage: 0.7 UNK
     Route: 065
     Dates: start: 20120117, end: 20120117
  6. DECITABINE [Concomitant]
     Active Substance: DECITABINE
     Indication: Product used for unknown indication
     Dosage: 20 UNK, QD
     Route: 065
     Dates: start: 20110822, end: 20110822
  7. DECITABINE [Concomitant]
     Active Substance: DECITABINE
     Dosage: 20 UNK, QD
     Route: 065
     Dates: start: 20110823, end: 20110823
  8. DECITABINE [Concomitant]
     Active Substance: DECITABINE
     Dosage: 20 UNK, QD
     Route: 065
     Dates: start: 20110824, end: 20110824
  9. DECITABINE [Concomitant]
     Active Substance: DECITABINE
     Dosage: 20 UNK, QD
     Route: 065
     Dates: start: 20110825, end: 20110825
  10. DECITABINE [Concomitant]
     Active Substance: DECITABINE
     Dosage: 20 UNK, QD
     Route: 065
     Dates: start: 20110826, end: 20110826
  11. DECITABINE [Concomitant]
     Active Substance: DECITABINE
     Dosage: 20 UNK, QD
     Route: 065
     Dates: start: 20110919, end: 20110919
  12. DECITABINE [Concomitant]
     Active Substance: DECITABINE
     Dosage: 20 UNK, QD
     Route: 065
     Dates: start: 20110920, end: 20110920
  13. DECITABINE [Concomitant]
     Active Substance: DECITABINE
     Dosage: 20 UNK, QD
     Route: 065
     Dates: start: 20110921, end: 20110921
  14. DECITABINE [Concomitant]
     Active Substance: DECITABINE
     Dosage: 20 UNK, QD
     Route: 065
     Dates: start: 20110922, end: 20110922
  15. DECITABINE [Concomitant]
     Active Substance: DECITABINE
     Dosage: 20 UNK, QD
     Route: 065
     Dates: start: 20110923, end: 20110923
  16. DECITABINE [Concomitant]
     Active Substance: DECITABINE
     Dosage: 20 UNK, QD
     Route: 065
     Dates: start: 20111024, end: 20111024
  17. DECITABINE [Concomitant]
     Active Substance: DECITABINE
     Dosage: 20 UNK, QD
     Route: 065
     Dates: start: 20111025, end: 20111025
  18. DECITABINE [Concomitant]
     Active Substance: DECITABINE
     Dosage: 20 UNK, QD
     Route: 065
     Dates: start: 20111026, end: 20111026
  19. DECITABINE [Concomitant]
     Active Substance: DECITABINE
     Dosage: 20 UNK, QD
     Route: 065
     Dates: start: 20111027, end: 20111027
  20. DECITABINE [Concomitant]
     Active Substance: DECITABINE
     Dosage: 20 UNK, QD
     Route: 065
     Dates: start: 20111028, end: 20111028
  21. DECITABINE [Concomitant]
     Active Substance: DECITABINE
     Dosage: 20 UNK, QD
     Route: 065
     Dates: start: 20111219, end: 20111219
  22. DECITABINE [Concomitant]
     Active Substance: DECITABINE
     Dosage: 20 UNK, QD
     Route: 065
     Dates: start: 20111220, end: 20111220
  23. DECITABINE [Concomitant]
     Active Substance: DECITABINE
     Dosage: 20 UNK, QD
     Route: 065
     Dates: start: 20111221, end: 20111221
  24. DECITABINE [Concomitant]
     Active Substance: DECITABINE
     Dosage: 20 UNK, QD
     Route: 065
     Dates: start: 20111222, end: 20111222
  25. DECITABINE [Concomitant]
     Active Substance: DECITABINE
     Dosage: 20 UNK, QD
     Route: 065
     Dates: start: 20111223, end: 20111223
  26. BATROXOBIN [Concomitant]
     Active Substance: BATROXOBIN
     Indication: Product used for unknown indication
     Dosage: 6 UNK
     Route: 065
     Dates: start: 20120112, end: 20120115
  27. BENPROPERINE [Concomitant]
     Active Substance: BENPROPERINE
     Indication: Product used for unknown indication
     Dosage: 60 MILLIGRAM
     Route: 065
     Dates: start: 20120115, end: 20120117
  28. BROMHEXINE [Concomitant]
     Active Substance: BROMHEXINE
     Indication: Product used for unknown indication
     Dosage: 24 MILLIGRAM
     Route: 065
     Dates: start: 20120115, end: 20120117
  29. CEFAMANDOLE [Concomitant]
     Active Substance: CEFAMANDOLE
     Indication: Product used for unknown indication
     Dosage: 1000 MILLIGRAM
     Route: 065
     Dates: start: 20120113, end: 20120113
  30. CEFPIROME [Concomitant]
     Active Substance: CEFPIROME
     Indication: Product used for unknown indication
     Dosage: 4000 MILLIGRAM
     Route: 065
     Dates: start: 20120105, end: 20120110
  31. CEFPIROME [Concomitant]
     Active Substance: CEFPIROME
     Dosage: 2000 MILLIGRAM
     Route: 065
     Dates: start: 20120111, end: 20120112
  32. CEFTAZIDIME [Concomitant]
     Active Substance: CEFTAZIDIME
     Indication: Product used for unknown indication
     Dosage: 6000 MILLIGRAM
     Route: 065
     Dates: start: 20111109, end: 20111118
  33. CEFTIZOXIME [Concomitant]
     Active Substance: CEFTIZOXIME
     Indication: Product used for unknown indication
     Dosage: 3000 MILLIGRAM
     Route: 065
     Dates: start: 20120112, end: 20120116
  34. CEFTIZOXIME [Concomitant]
     Active Substance: CEFTIZOXIME
     Dosage: 1000 MILLIGRAM
     Route: 065
     Dates: start: 20120117, end: 20120117
  35. CELECOXIB [Concomitant]
     Active Substance: CELECOXIB
     Indication: Product used for unknown indication
     Dosage: 200 MILLIGRAM
     Route: 065
     Dates: start: 20120127, end: 20120209
  36. CHLORAMPHENICOL [Concomitant]
     Active Substance: CHLORAMPHENICOL
     Indication: Product used for unknown indication
     Dosage: 500 MILLIGRAM
     Route: 065
     Dates: start: 20111028, end: 20111111
  37. CHLORPHENIRAMINE MALEATE [Concomitant]
     Active Substance: CHLORPHENIRAMINE MALEATE
     Indication: Product used for unknown indication
     Dosage: 4 MILLIGRAM
     Route: 065
     Dates: start: 20111109, end: 20111109
  38. CHLORPHENIRAMINE MALEATE [Concomitant]
     Active Substance: CHLORPHENIRAMINE MALEATE
     Dosage: 2 MILLIGRAM
     Route: 065
     Dates: start: 20111110, end: 20111110
  39. CHLORPHENIRAMINE MALEATE [Concomitant]
     Active Substance: CHLORPHENIRAMINE MALEATE
     Dosage: 4 MILLIGRAM
     Route: 065
     Dates: start: 20120105, end: 20120106
  40. CHLORPHENIRAMINE MALEATE [Concomitant]
     Active Substance: CHLORPHENIRAMINE MALEATE
     Dosage: 4 MILLIGRAM
     Route: 065
     Dates: start: 20120109, end: 20120111
  41. CHLORPHENIRAMINE MALEATE [Concomitant]
     Active Substance: CHLORPHENIRAMINE MALEATE
     Dosage: 4 MILLIGRAM
     Route: 065
     Dates: start: 20120114, end: 20120115
  42. CHLORPHENIRAMINE MALEATE [Concomitant]
     Active Substance: CHLORPHENIRAMINE MALEATE
     Dosage: 8 MILLIGRAM
     Route: 065
     Dates: start: 20120102, end: 20120102
  43. CHLORPHENIRAMINE MALEATE [Concomitant]
     Active Substance: CHLORPHENIRAMINE MALEATE
     Dosage: 8 MILLIGRAM
     Route: 065
     Dates: start: 20120108, end: 20120108
  44. CHLORPHENIRAMINE MALEATE [Concomitant]
     Active Substance: CHLORPHENIRAMINE MALEATE
     Dosage: 8 MILLIGRAM
     Route: 065
     Dates: start: 20120112, end: 20120113
  45. CHLORPHENIRAMINE MALEATE [Concomitant]
     Active Substance: CHLORPHENIRAMINE MALEATE
     Dosage: 16 MILLIGRAM
     Route: 065
     Dates: start: 20120107, end: 20120107
  46. CIMETIDINE [Concomitant]
     Active Substance: CIMETIDINE
     Indication: Product used for unknown indication
     Dosage: 400 MILLIGRAM
     Route: 065
     Dates: start: 20120112, end: 20120112
  47. CIMETIDINE [Concomitant]
     Active Substance: CIMETIDINE
     Dosage: 600 MILLIGRAM
     Route: 065
     Dates: start: 20120113, end: 20120114
  48. DEXAMETHASONE [Concomitant]
     Active Substance: DEXAMETHASONE
     Indication: Product used for unknown indication
     Dosage: 5 MILLIGRAM
     Route: 065
     Dates: start: 20120102, end: 20120102
  49. DIFLUCORTOLONE [Concomitant]
     Active Substance: DIFLUCORTOLONE
     Indication: Product used for unknown indication
     Dosage: 1 UNK
     Route: 065
     Dates: start: 20111028, end: 20111111
  50. FUROSEMIDE [Concomitant]
     Active Substance: FUROSEMIDE
     Indication: Product used for unknown indication
     Dosage: 20 MILLIGRAM
     Route: 065
     Dates: start: 20120102, end: 20120102
  51. HYDROCORTISONE [Concomitant]
     Active Substance: HYDROCORTISONE
     Indication: Product used for unknown indication
     Dosage: 100 MILLIGRAM
     Route: 065
     Dates: start: 20120110, end: 20120111
  52. ITRACONAZOLE [Concomitant]
     Active Substance: ITRACONAZOLE
     Indication: Product used for unknown indication
     Dosage: 2 UNK
     Route: 065
     Dates: start: 20110818, end: 20110904
  53. ITRACONAZOLE [Concomitant]
     Active Substance: ITRACONAZOLE
     Dosage: 20 MILLIGRAM
     Route: 065
     Dates: start: 20111109, end: 20111109
  54. ITRACONAZOLE [Concomitant]
     Active Substance: ITRACONAZOLE
     Dosage: 20 MILLIGRAM
     Route: 065
     Dates: start: 20111110, end: 20111124
  55. ITRACONAZOLE [Concomitant]
     Active Substance: ITRACONAZOLE
     Dosage: 20 UNK
     Route: 065
     Dates: start: 20110905, end: 20110918
  56. ITRACONAZOLE [Concomitant]
     Active Substance: ITRACONAZOLE
     Dosage: 20 UNK
     Route: 065
     Dates: start: 20110919, end: 20111016
  57. KETOROLAC [Concomitant]
     Active Substance: KETOROLAC TROMETHAMINE
     Indication: Product used for unknown indication
     Dosage: 30 MILLIGRAM
     Route: 065
     Dates: start: 20120112, end: 20120112
  58. LAFUTIDINE [Concomitant]
     Active Substance: LAFUTIDINE
     Indication: Product used for unknown indication
     Dosage: 20 MILLIGRAM
     Route: 065
     Dates: start: 20120116, end: 20120116
  59. LAFUTIDINE [Concomitant]
     Active Substance: LAFUTIDINE
     Dosage: 10 MILLIGRAM
     Route: 065
     Dates: start: 20120117, end: 20120117
  60. LAFUTIDINE [Concomitant]
     Active Substance: LAFUTIDINE
     Dosage: 20 MILLIGRAM
     Route: 065
     Dates: start: 20120127, end: 20120131
  61. LEVOFLOXACIN [Concomitant]
     Active Substance: LEVOFLOXACIN
     Indication: Product used for unknown indication
     Dosage: 500 MILLIGRAM
     Route: 065
     Dates: start: 20110818, end: 20110918
  62. LEVOFLOXACIN [Concomitant]
     Active Substance: LEVOFLOXACIN
     Dosage: 500 MILLIGRAM
     Route: 065
     Dates: start: 20110919, end: 20111016
  63. METOCLOPRAMIDE [Concomitant]
     Active Substance: METOCLOPRAMIDE
     Indication: Product used for unknown indication
     Dosage: 20 MILLIGRAM
     Route: 065
     Dates: start: 20111110, end: 20111110
  64. MISOPROSTOL [Concomitant]
     Active Substance: MISOPROSTOL
     Indication: Product used for unknown indication
     Dosage: 200 UNK
     Route: 065
     Dates: start: 20111122, end: 20111201
  65. MISOPROSTOL [Concomitant]
     Active Substance: MISOPROSTOL
     Dosage: 200 UNK
     Route: 065
     Dates: start: 20111209, end: 20111218
  66. MISOPROSTOL [Concomitant]
     Active Substance: MISOPROSTOL
     Dosage: 200 UNK
     Route: 065
     Dates: start: 20120102, end: 20120104
  67. MISOPROSTOL [Concomitant]
     Active Substance: MISOPROSTOL
     Dosage: 200 UNK
     Route: 065
     Dates: start: 20120106, end: 20120110
  68. MISOPROSTOL [Concomitant]
     Active Substance: MISOPROSTOL
     Dosage: 200 UNK
     Route: 065
     Dates: start: 20120117, end: 20120123
  69. LIPASE;MOLSIN;PANCREATIN [Concomitant]
     Indication: Product used for unknown indication
     Dosage: 1 UNK
     Route: 065
     Dates: start: 20120116, end: 20120116
  70. LIPASE;MOLSIN;PANCREATIN [Concomitant]
     Dosage: 2 UNK
     Route: 065
     Dates: start: 20120117, end: 20120117
  71. LIPASE;MOLSIN;PANCREATIN [Concomitant]
     Dosage: 2 UNK
     Route: 065
     Dates: start: 20120127, end: 20120131
  72. NETILMICIN [Concomitant]
     Active Substance: NETILMICIN
     Indication: Product used for unknown indication
     Dosage: 300 MILLIGRAM
     Route: 065
     Dates: start: 20111110, end: 20111117
  73. NETILMICIN [Concomitant]
     Active Substance: NETILMICIN
     Dosage: 300 MILLIGRAM
     Route: 065
     Dates: start: 20120105, end: 20120110
  74. ACETAMINOPHEN [Concomitant]
     Active Substance: ACETAMINOPHEN
     Indication: Product used for unknown indication
     Dosage: 650 MILLIGRAM
     Route: 065
     Dates: start: 20111109, end: 20111109
  75. ACETAMINOPHEN [Concomitant]
     Active Substance: ACETAMINOPHEN
     Dosage: 650 MILLIGRAM
     Route: 065
     Dates: start: 20120105, end: 20120105
  76. ACETAMINOPHEN [Concomitant]
     Active Substance: ACETAMINOPHEN
     Dosage: 650 MILLIGRAM
     Route: 065
     Dates: start: 20120106, end: 20120107
  77. ACETAMINOPHEN [Concomitant]
     Active Substance: ACETAMINOPHEN
     Dosage: 650 MILLIGRAM
     Route: 065
     Dates: start: 20120114, end: 20120114
  78. ACETAMINOPHEN [Concomitant]
     Active Substance: ACETAMINOPHEN
     Dosage: 650 MILLIGRAM
     Route: 065
     Dates: start: 20120116, end: 20120116
  79. PREDNISOLONE [Concomitant]
     Active Substance: PREDNISOLONE
     Indication: Product used for unknown indication
     Dosage: 10 MILLIGRAM
     Route: 065
     Dates: start: 20111125, end: 20111201
  80. PREDNISOLONE [Concomitant]
     Active Substance: PREDNISOLONE
     Dosage: 7.5 MILLIGRAM
     Route: 065
     Dates: start: 20111209, end: 20111218
  81. PREDNISOLONE [Concomitant]
     Active Substance: PREDNISOLONE
     Dosage: 5 MILLIGRAM
     Route: 065
     Dates: start: 20120109, end: 20120110
  82. PREDNISOLONE [Concomitant]
     Active Substance: PREDNISOLONE
     Dosage: 10 MILLIGRAM
     Route: 065
     Dates: start: 20120108, end: 20120108
  83. PREDNISOLONE [Concomitant]
     Active Substance: PREDNISOLONE
     Dosage: 20 MILLIGRAM
     Route: 065
     Dates: start: 20120107, end: 20120107
  84. PREDNISOLONE [Concomitant]
     Active Substance: PREDNISOLONE
     Dosage: 30 MILLIGRAM
     Route: 065
     Dates: start: 20120102, end: 20120104
  85. PREDNISOLONE [Concomitant]
     Active Substance: PREDNISOLONE
     Dosage: 30 MILLIGRAM
     Route: 065
     Dates: start: 20120106, end: 20120106
  86. PROPACETAMOL [Concomitant]
     Active Substance: PROPACETAMOL
     Indication: Product used for unknown indication
     Dosage: 1 UNK
     Route: 065
     Dates: start: 20120115, end: 20120115
  87. PROPACETAMOL [Concomitant]
     Active Substance: PROPACETAMOL
     Dosage: 1000 MILLIGRAM
     Route: 065
     Dates: start: 20120102, end: 20120102
  88. RANITIDINE [Concomitant]
     Active Substance: RANITIDINE
     Indication: Product used for unknown indication
     Dosage: 100 MILLIGRAM
     Route: 065
     Dates: start: 20111109, end: 20111109
  89. ZIPEPROL [Concomitant]
     Active Substance: ZIPEPROL
     Indication: Product used for unknown indication
     Dosage: 30 UNK
     Route: 065
     Dates: start: 20120114, end: 20120114

REACTIONS (33)
  - Febrile neutropenia [Recovered/Resolved]
  - Febrile neutropenia [Recovered/Resolved]
  - Neutropenia [Recovered/Resolved]
  - Neutropenia [Recovered/Resolved]
  - Febrile neutropenia [Recovered/Resolved]
  - Febrile neutropenia [Recovered/Resolved]
  - Neutropenia [Recovered/Resolved]
  - Neutropenia [Recovered/Resolved]
  - Neutropenia [Recovered/Resolved]
  - Urinary tract infection [Recovered/Resolved]
  - Neck pain [Recovered/Resolved]
  - Decreased appetite [Recovered/Resolved]
  - Asthenia [Recovered/Resolved]
  - Asthenia [Recovered/Resolved]
  - Stomatitis [Recovered/Resolved]
  - Stomatitis [Recovered/Resolved]
  - Stomatitis [Recovered/Resolved]
  - Platelet count decreased [Recovered/Resolved]
  - Platelet count decreased [Recovered/Resolved]
  - Platelet count decreased [Recovered/Resolved]
  - Platelet count decreased [Recovered/Resolved]
  - Rhinorrhoea [Recovered/Resolved]
  - Dyspepsia [Recovered/Resolved]
  - Upper respiratory tract infection [Recovered/Resolved]
  - Rash [Recovered/Resolved]
  - Arthralgia [Recovered/Resolved]
  - Nausea [Recovered/Resolved]
  - Nausea [Recovered/Resolved]
  - Platelet count decreased [Recovered/Resolved]
  - Platelet count decreased [Recovered/Resolved]
  - Platelet count decreased [Recovered/Resolved]
  - Platelet count decreased [Recovered/Resolved]
  - Platelet count decreased [Recovered/Resolved]

NARRATIVE: CASE EVENT DATE: 20110829
